FAERS Safety Report 5710092-5 (Version None)
Quarter: 2008Q2

REPORT INFORMATION
  Report Type: 
  Country: None (occurrence: None)
  Receive Date: 20080418
  Receipt Date: 20071210
  Transmission Date: 20081010
  Serious: No
  Sender: FDA-Public Use
  Company Number: US-ASTRAZENECA-2007UW27138

PATIENT
  Age: 56 Year
  Sex: Female
  Weight: 113.4 kg

DRUGS (9)
  1. TOPROL-XL [Suspect]
     Indication: HYPERTENSION
     Route: 048
     Dates: start: 20071101
  2. ACCUPRIL [Concomitant]
  3. FLEXERIL [Concomitant]
     Indication: MUSCLE SPASMS
  4. CELEBREX [Concomitant]
  5. LORTAB [Concomitant]
  6. OXYCONTIN [Concomitant]
  7. ACIPHEX [Concomitant]
  8. LIDODERM [Concomitant]
     Dosage: PATCH
     Route: 061
  9. DULCOLAX [Concomitant]

REACTIONS (6)
  - BLOOD PRESSURE INCREASED [None]
  - CHEST DISCOMFORT [None]
  - CHEST PAIN [None]
  - DIZZINESS [None]
  - HEADACHE [None]
  - HOT FLUSH [None]
